FAERS Safety Report 6894653-6 (Version None)
Quarter: 2010Q3

REPORT INFORMATION
  Report Type: 
  Country: None (occurrence: None)
  Receive Date: 20100802
  Receipt Date: 20100728
  Transmission Date: 20110219
  Serious: Yes (Other)
  Sender: FDA-Public Use
  Company Number: TW-BRISTOL-MYERS SQUIBB COMPANY-15209471

PATIENT
  Age: 44 Year
  Sex: Female

DRUGS (5)
  1. ARIPIPRAZOLE [Suspect]
  2. FLUPENTIXOL [Suspect]
  3. CLOZAPINE [Concomitant]
     Indication: SCHIZOPHRENIA
     Dosage: INCREASED TO 100 MG/DAY
  4. FLUDIAZEPAM [Concomitant]
     Indication: ANXIETY
  5. BIPERIDEN HYDROCHLORIDE TAB [Concomitant]
     Dosage: START DOSE 5MG IM
     Route: 048

REACTIONS (1)
  - PLEUROTHOTONUS [None]
